FAERS Safety Report 17808848 (Version 1)
Quarter: 2020Q2

REPORT INFORMATION
  Report Type: Spontaneous
  Country: AR (occurrence: AR)
  Receive Date: 20200520
  Receipt Date: 20200520
  Transmission Date: 20200714
  Serious: Yes (Hospitalization)
  Sender: FDA-Public Use
  Company Number: NVSC2020AR136471

PATIENT
  Age: 72 Year
  Sex: Male

DRUGS (1)
  1. TRAVATAN [Suspect]
     Active Substance: TRAVOPROST
     Indication: CATARACT OPERATION
     Dosage: 0.04 MG, QD
     Route: 065
     Dates: start: 201907

REACTIONS (10)
  - Swelling [Recovering/Resolving]
  - Heart rate decreased [Recovering/Resolving]
  - Chest pain [Recovering/Resolving]
  - Insomnia [Recovering/Resolving]
  - Limb injury [Recovering/Resolving]
  - Anxiety [Recovering/Resolving]
  - Eye pain [Recovering/Resolving]
  - Ulcer [Recovering/Resolving]
  - Dry mouth [Recovering/Resolving]
  - Abdominal pain [Not Recovered/Not Resolved]

NARRATIVE: CASE EVENT DATE: 202002
